FAERS Safety Report 5595911-8 (Version None)
Quarter: 2008Q1

REPORT INFORMATION
  Report Type: 
  Country: None (occurrence: None)
  Receive Date: 20080118
  Receipt Date: 20080109
  Transmission Date: 20080703
  Serious: Yes (Other)
  Sender: FDA-Public Use
  Company Number: JP-ASTRAZENECA-2007AP06384

PATIENT
  Age: 61 Year
  Sex: Male
  Weight: 73 kg

DRUGS (4)
  1. CRESTOR [Suspect]
     Indication: HYPERCHOLESTEROLAEMIA
     Route: 048
     Dates: start: 20070411, end: 20070805
  2. ALLOPURINOL [Concomitant]
     Route: 048
     Dates: start: 20030515
  3. YM [Concomitant]
     Route: 048
     Dates: start: 20040611
  4. ZANTAC [Concomitant]
     Route: 048
     Dates: start: 20070611

REACTIONS (4)
  - CHILLS [None]
  - EPIGASTRIC DISCOMFORT [None]
  - HEPATIC FUNCTION ABNORMAL [None]
  - PYREXIA [None]
